FAERS Safety Report 6438179-2 (Version None)
Quarter: 2009Q4

REPORT INFORMATION
  Report Type: 
  Country: None (occurrence: None)
  Receive Date: 20091112
  Receipt Date: 20091104
  Transmission Date: 20100525
  Serious: Yes (Other)
  Sender: FDA-Public Use
  Company Number: NZ-PURDUE-USA-2009-0040869

PATIENT
  Age: 70 Year
  Sex: Female

DRUGS (8)
  1. OXYCONTIN [Suspect]
     Indication: DRUG USE FOR UNKNOWN INDICATION
     Dosage: 10 MG, DAILY
     Route: 048
     Dates: start: 20090901, end: 20091016
  2. PROPAFENONE HCL [Concomitant]
  3. NOVORAPID [Concomitant]
  4. SPIRONOLACTONE [Concomitant]
  5. FAMOTIDINE [Concomitant]
  6. METOPROLOL [Concomitant]
  7. FRUSEMIDE                          /00032601/ [Concomitant]
  8. ALLOPURINOL [Concomitant]

REACTIONS (2)
  - GLOMERULAR FILTRATION RATE DECREASED [None]
  - RENAL IMPAIRMENT [None]
